FAERS Safety Report 24579934 (Version 1)
Quarter: 2024Q4

REPORT INFORMATION
  Report Type: Spontaneous
  Country: US (occurrence: None)
  Receive Date: 20241104
  Receipt Date: 20241104
  Transmission Date: 20250115
  Serious: Yes (Hospitalization)
  Sender: Public
  Company Number: None

PATIENT
  Age: 70 Year
  Sex: Male

DRUGS (1)
  1. ASPIRIN [Suspect]
     Active Substance: ASPIRIN
     Indication: Pain
     Dates: start: 20240101, end: 20240719

REACTIONS (3)
  - Gastrointestinal haemorrhage [None]
  - Dizziness postural [None]
  - Cough [None]

NARRATIVE: CASE EVENT DATE: 20240721
